FAERS Safety Report 9960342 (Version 1)
Quarter: 2014Q1

REPORT INFORMATION
  Report Type: Spontaneous
  Country: US (occurrence: US)
  Receive Date: 20140305
  Receipt Date: 20140305
  Transmission Date: 20141002
  Serious: No
  Sender: FDA-Public Use
  Company Number: US-SHIRE-US201400252

PATIENT
  Sex: 0

DRUGS (5)
  1. VYVANSE [Suspect]
     Indication: ATTENTION DEFICIT/HYPERACTIVITY DISORDER
     Dosage: 30 MG, 1X/DAY:QD
     Route: 048
     Dates: start: 20140227, end: 20140227
  2. VYVANSE [Suspect]
     Dosage: 60 MG (TWO 30 MG CAPSULES), 1X/DAY:QD
     Route: 048
     Dates: start: 20140228
  3. OXYCODONE [Concomitant]
     Indication: PAIN
     Dosage: UNK UNK (ONE-SIX 5MG TABLETS DAILY), 1X/DAY:QD
     Route: 048
     Dates: start: 2005
  4. DELZICOL [Concomitant]
     Indication: COLITIS ULCERATIVE
     Dosage: 2400 MG, 1X/DAY:QD
     Route: 048
     Dates: start: 2013
  5. MS CONTIN [Concomitant]
     Indication: PAIN
     Dosage: 15 MG, 3X/DAY:TID
     Route: 048
     Dates: start: 2013

REACTIONS (5)
  - Paraesthesia [Recovered/Resolved]
  - Feeling abnormal [Not Recovered/Not Resolved]
  - Irritability [Not Recovered/Not Resolved]
  - Condition aggravated [Not Recovered/Not Resolved]
  - Drug ineffective [Not Recovered/Not Resolved]
